FAERS Safety Report 5159410-X (Version None)
Quarter: 2006Q4

REPORT INFORMATION
  Report Type: 
  Country: None (occurrence: None)
  Receive Date: 20061122
  Receipt Date: 20061122
  Transmission Date: 20070319
  Serious: Yes (Other)
  Sender: FDA-Public Use
  Company Number: None

PATIENT
  Age: 23 Year
  Sex: Male
  Weight: 73.9363 kg

DRUGS (2)
  1. CLONAZEPAM [Suspect]
     Indication: CONVULSION
     Dosage: WAS 1MG TWICE DAILY THEN MISTAKE 2 MG
     Dates: start: 20060926
  2. CLONAZEPAM [Suspect]
     Indication: CONVULSION
     Dosage: WAS 1MG TWICE DAILY THEN MISTAKE 2 MG
     Dates: start: 20060930

REACTIONS (10)
  - ABNORMAL BEHAVIOUR [None]
  - AGITATION [None]
  - AMNESIA [None]
  - ANGER [None]
  - DRUG PRESCRIBING ERROR [None]
  - FEELING DRUNK [None]
  - INCORRECT DOSE ADMINISTERED [None]
  - MEDICATION ERROR [None]
  - MENTAL DISORDER [None]
  - SUICIDAL IDEATION [None]
